FAERS Safety Report 12077701 (Version 1)
Quarter: 2016Q1

REPORT INFORMATION
  Report Type: Report from Study
  Country: RU (occurrence: RU)
  Receive Date: 20160215
  Receipt Date: 20160215
  Transmission Date: 20160526
  Serious: Yes (Other)
  Sender: FDA-Public Use
  Company Number: RU-BRISTOL-MYERS SQUIBB COMPANY-16369241

PATIENT
  Age: 31 Year
  Sex: Female
  Weight: 61 kg

DRUGS (3)
  1. ABATACEPT [Suspect]
     Active Substance: ABATACEPT
     Indication: RHEUMATOID ARTHRITIS
     Dosage: 500 MG, QD
     Route: 042
     Dates: start: 20110412, end: 20111123
  2. EXTERNAL-MELOXICAM [Suspect]
     Active Substance: MELOXICAM
     Indication: RHEUMATOID ARTHRITIS
     Dosage: 7.5 MG, QD
     Route: 048
     Dates: start: 200908, end: 20111215
  3. EXTERNAL-SULFASALAZINE [Suspect]
     Active Substance: SULFASALAZINE
     Indication: RHEUMATOID ARTHRITIS
     Dosage: 1000 MG, BID
     Route: 048
     Dates: start: 20100112, end: 20111215

REACTIONS (4)
  - Caesarean section [None]
  - Maternal exposure before pregnancy [Recovered/Resolved]
  - Hypoxia [Unknown]
  - Normal newborn [Unknown]

NARRATIVE: CASE EVENT DATE: 20120908
